FAERS Safety Report 7751372-1 (Version None)
Quarter: 2011Q3

REPORT INFORMATION
  Report Type: 
  Country: None (occurrence: None)
  Receive Date: 20110914
  Receipt Date: 20110831
  Transmission Date: 20111222
  Serious: Yes (Other)
  Sender: FDA-Public Use
  Company Number: US-BAYER-2011-081792

PATIENT
  Sex: Female
  Weight: 77 kg

DRUGS (2)
  1. ASPIRIN [Suspect]
     Dosage: 1 DF, QD
     Route: 048
  2. COUMADIN [Concomitant]
     Dosage: UNK
     Dates: start: 19900101

REACTIONS (1)
  - LYMPHOMA [None]
